FAERS Safety Report 7968380-8 (Version None)
Quarter: 2011Q4

REPORT INFORMATION
  Report Type: 
  Country: None (occurrence: None)
  Receive Date: 20111209
  Receipt Date: 20111130
  Transmission Date: 20120403
  Serious: Yes (Other)
  Sender: FDA-Public Use
  Company Number: BR-BAYER-2011-115470

PATIENT
  Age: 21 Year
  Sex: Female

DRUGS (1)
  1. ESTRADIOL VALERATE/DIENOGEST [Suspect]
     Indication: PRODUCT USED FOR UNKNOWN INDICATION
     Dosage: UNK
     Route: 048
     Dates: start: 20100101

REACTIONS (5)
  - AMENORRHOEA [None]
  - BENIGN BREAST NEOPLASM [None]
  - BREAST MASS [None]
  - METRORRHAGIA [None]
  - ABDOMINAL PAIN [None]
